FAERS Safety Report 4958033-2 (Version None)
Quarter: 2006Q1

REPORT INFORMATION
  Report Type: 
  Country: None (occurrence: None)
  Receive Date: 20060330
  Receipt Date: 20050707
  Transmission Date: 20060701
  Serious: Yes (Disabling)
  Sender: FDA-Public Use
  Company Number: US-MERCK-0507USA01286

PATIENT
  Age: 66 Year
  Sex: Female
  Weight: 66 kg

DRUGS (8)
  1. PREMARIN [Concomitant]
     Indication: MENOPAUSAL SYMPTOMS
     Route: 065
  2. NAPROXEN [Concomitant]
     Route: 065
  3. FOSAMAX [Concomitant]
     Route: 065
  4. VITAMINS (UNSPECIFIED) [Concomitant]
     Route: 065
  5. CALCIUM (UNSPECIFIED) [Concomitant]
     Route: 065
  6. VIOXX [Suspect]
     Indication: OSTEOARTHRITIS
     Route: 048
     Dates: start: 20011101, end: 20040801
  7. ZOCOR [Concomitant]
     Indication: BLOOD CHOLESTEROL
     Route: 065
  8. NIACIN [Concomitant]
     Route: 065

REACTIONS (3)
  - DYSPNOEA [None]
  - FATIGUE [None]
  - MYOCARDIAL INFARCTION [None]
